FAERS Safety Report 17687603 (Version 2)
Quarter: 2020Q2

REPORT INFORMATION
  Report Type: Spontaneous
  Country: IR (occurrence: IR)
  Receive Date: 20200421
  Receipt Date: 20200430
  Transmission Date: 20200714
  Serious: Yes (Other)
  Sender: FDA-Public Use
  Company Number: IR-BAUSCH-BL-2020-010853

PATIENT
  Age: 12 Year
  Sex: Female
  Weight: 40 kg

DRUGS (4)
  1. DEXAMETHASONE. [Suspect]
     Active Substance: DEXAMETHASONE
     Indication: B PRECURSOR TYPE ACUTE LEUKAEMIA
     Dosage: BFM 2009 ALL PROTOCOL (6MG/M2/D INTRAVENOUS DIVIDED Q6H FOR 28 DAYS)
     Route: 042
  2. DAUNORUBICIN [Suspect]
     Active Substance: DAUNORUBICIN
     Indication: B PRECURSOR TYPE ACUTE LEUKAEMIA
     Dosage: BFM 2009 ALL PROTOCOL (40 MG/M2 (INTRAVENOUS INFUSION) FOR 30 MINUTES EVERY 2 WEEKS)
     Route: 042
  3. L-ASPARAGINASE [Suspect]
     Active Substance: ASPARAGINASE
     Indication: B PRECURSOR TYPE ACUTE LEUKAEMIA
     Dosage: BFM 2009 ALL PROTOCOL (6000 U/M2 IM 3 TIMES A WEEK X 9 DOSES)
     Route: 030
  4. VINCRISTINE [Suspect]
     Active Substance: VINCRISTINE
     Indication: B PRECURSOR TYPE ACUTE LEUKAEMIA
     Dosage: BFM 2009 ALL PROTOCOL (4 DOSES OF 1.5 DF WEEEKLY)
     Route: 042

REACTIONS (2)
  - Aspergillus infection [Unknown]
  - Pneumocystis jirovecii pneumonia [Unknown]
